FAERS Safety Report 10432987 (Version 1)
Quarter: 2014Q3

REPORT INFORMATION
  Report Type: Spontaneous
  Country: US (occurrence: None)
  Receive Date: 20140815
  Receipt Date: 20140815
  Transmission Date: 20150326
  Serious: No
  Sender: FDA-Public Use
  Company Number: A-NJ2014-101087

PATIENT
  Age: 92 Year
  Sex: Female

DRUGS (5)
  1. OPSUMIT [Suspect]
     Active Substance: MACITENTAN
     Indication: PULMONARY ARTERIAL HYPERTENSION
     Route: 048
     Dates: start: 20131223
  2. LASIX [Concomitant]
     Active Substance: FUROSEMIDE
  3. TRAMADOL [Concomitant]
     Active Substance: TRAMADOL
  4. IRON [Concomitant]
     Active Substance: IRON
  5. NOVOLOG [Concomitant]
     Active Substance: INSULIN ASPART

REACTIONS (1)
  - Red blood cell count decreased [None]
